FAERS Safety Report 7298003-5 (Version None)
Quarter: 2011Q1

REPORT INFORMATION
  Report Type: 
  Country: None (occurrence: None)
  Receive Date: 20110217
  Receipt Date: 20110214
  Transmission Date: 20110831
  Serious: No
  Sender: FDA-Public Use
  Company Number: US-PFIZER INC-2011033261

PATIENT
  Sex: Male
  Weight: 83.447 kg

DRUGS (11)
  1. RAMIPRIL [Concomitant]
     Indication: CARDIAC DISORDER
     Dosage: 5 MG, 2X/DAY
     Route: 048
  2. ALBUTEROL SULFATE [Suspect]
     Indication: BRONCHITIS
     Dosage: UNK
     Dates: start: 20100101, end: 20100101
  3. OMEGA 3/OMEGA 6/OMEGA 9 TRIGLYCERIDES [Concomitant]
     Indication: SUPPLEMENTATION THERAPY
     Dosage: UNK
     Route: 048
  4. BENZONATATE [Suspect]
     Indication: BRONCHITIS
     Dosage: 200 MG, 1X/DAY
     Dates: start: 20100101, end: 20100101
  5. LIPITOR [Concomitant]
     Indication: BLOOD CHOLESTEROL INCREASED
     Dosage: 20 MG, 1X/DAY
     Route: 048
  6. ACETYLSALICYLIC ACID [Concomitant]
     Indication: MYOCARDIAL INFARCTION
     Dosage: 225 MG, 1X/DAY
     Route: 048
  7. PREDNISONE TAB [Suspect]
     Indication: BRONCHITIS
     Dosage: 20 MG, 2X/DAY
     Dates: start: 20100101, end: 20100101
  8. METOPROLOL [Concomitant]
     Indication: CARDIAC DISORDER
     Dosage: 50 MG, 1X/DAY
     Route: 048
  9. ZITHROMAX [Suspect]
     Indication: BRONCHITIS
     Dosage: 250 MG, 1X/DAY
     Route: 048
     Dates: start: 20100101, end: 20100101
  10. FLOMAX [Concomitant]
     Indication: MICTURITION DISORDER
     Dosage: 0.8 MG, 1X/DAY
     Route: 048
  11. VITAMIN B-12 [Concomitant]
     Indication: SUPPLEMENTATION THERAPY
     Dosage: 2500 MG, 1X/DAY
     Route: 048

REACTIONS (2)
  - URINE ODOUR ABNORMAL [None]
  - ALOPECIA [None]
